FAERS Safety Report 18620239 (Version 1)
Quarter: 2020Q4

REPORT INFORMATION
  Report Type: Spontaneous
  Country: US (occurrence: US)
  Receive Date: 20201215
  Receipt Date: 20201215
  Transmission Date: 20210114
  Serious: Yes (Hospitalization, Other)
  Sender: FDA-Public Use
  Company Number: US-TEVA-2020-US-1858074

PATIENT
  Age: 27 Year
  Sex: Female

DRUGS (14)
  1. GLUCAGON. [Suspect]
     Active Substance: GLUCAGON
     Dosage: 96 MILLIGRAM DAILY;
     Route: 041
  2. LITHIUM. [Concomitant]
     Active Substance: LITHIUM
     Indication: PRODUCT USED FOR UNKNOWN INDICATION
     Dosage: 900 MILLIGRAM DAILY;
     Route: 065
  3. DEXTROSE 10 [Suspect]
     Active Substance: DEXTROSE
     Indication: HYPOGLYCAEMIA
     Dosage: 7200 ML DAILY;
     Route: 041
  4. GLUCAGON. [Suspect]
     Active Substance: GLUCAGON
     Indication: HYPOGLYCAEMIA
     Dosage: INITIALLY, RECEIVED THREE DOSES; REQUIRED TOTAL ELEVEN SUCH DOSES
     Route: 030
  5. BUPROPION. [Concomitant]
     Active Substance: BUPROPION
     Indication: PRODUCT USED FOR UNKNOWN INDICATION
     Dosage: 300 MILLIGRAM DAILY;
     Route: 065
  6. PRAZOSIN. [Concomitant]
     Active Substance: PRAZOSIN
     Indication: PRODUCT USED FOR UNKNOWN INDICATION
     Dosage: 5 MILLIGRAM DAILY; AT BED TIME
     Route: 065
  7. HYDROCORTISONE. [Suspect]
     Active Substance: HYDROCORTISONE
     Indication: HYPOGLYCAEMIA
     Dosage: A TRIAL DOSE
     Route: 040
  8. MIRTAZAPINE. [Concomitant]
     Active Substance: MIRTAZAPINE
     Indication: PRODUCT USED FOR UNKNOWN INDICATION
     Dosage: 30 MILLIGRAM DAILY; AT BED TIME
     Route: 065
  9. DEXTROSE 50 [Suspect]
     Active Substance: DEXTROSE
     Indication: HYPOGLYCAEMIA
     Dosage: RECEIVED IN TWO 50-GRAM AMPULES
     Route: 042
  10. GLUCAGON. [Suspect]
     Active Substance: GLUCAGON
     Dosage: 48 MILLIGRAM DAILY;
     Route: 041
  11. DULOXETINE. [Concomitant]
     Active Substance: DULOXETINE
     Indication: PRODUCT USED FOR UNKNOWN INDICATION
     Dosage: 120 MILLIGRAM DAILY;
     Route: 065
  12. TRAZODONE [Concomitant]
     Active Substance: TRAZODONE HYDROCHLORIDE
     Indication: PRODUCT USED FOR UNKNOWN INDICATION
     Dosage: 150 MILLIGRAM DAILY; AT BED TIME
     Route: 065
  13. HYDROCORTISONE. [Suspect]
     Active Substance: HYDROCORTISONE
     Indication: HYPOGLYCAEMIA
     Dosage: EVERY 8 HOURS
     Route: 042
  14. GLUCAGON. [Suspect]
     Active Substance: GLUCAGON
     Dosage: 24 MILLIGRAM DAILY;
     Route: 041

REACTIONS (2)
  - Drug ineffective [Unknown]
  - Hyperglycaemia [Recovered/Resolved]
